FAERS Safety Report 16940651 (Version 6)
Quarter: 2020Q2

REPORT INFORMATION
  Report Type: Report from Study
  Country: US (occurrence: US)
  Receive Date: 20191021
  Receipt Date: 20200521
  Transmission Date: 20200713
  Serious: Yes (Other)
  Sender: FDA-Public Use
  Company Number: US-ROCHE-2437011

PATIENT
  Age: 77 Year
  Sex: Male
  Weight: 71.73 kg

DRUGS (3)
  1. ESBRIET [Suspect]
     Active Substance: PIRFENIDONE
     Indication: IDIOPATHIC PULMONARY FIBROSIS
     Route: 048
     Dates: start: 20191003
  2. ESBRIET [Suspect]
     Active Substance: PIRFENIDONE
     Route: 048
  3. FLECAINIDE [Concomitant]
     Active Substance: FLECAINIDE

REACTIONS (9)
  - Sleep apnoea syndrome [Recovering/Resolving]
  - Gastrooesophageal reflux disease [Unknown]
  - Fatigue [Recovered/Resolved with Sequelae]
  - Atrial fibrillation [Unknown]
  - Hypotension [Not Recovered/Not Resolved]
  - Fatigue [Not Recovered/Not Resolved]
  - Dizziness [Not Recovered/Not Resolved]
  - Productive cough [Recovered/Resolved]
  - Weight fluctuation [Not Recovered/Not Resolved]

NARRATIVE: CASE EVENT DATE: 20191008
